FAERS Safety Report 6466282-X (Version None)
Quarter: 2009Q4

REPORT INFORMATION
  Report Type: 
  Country: None (occurrence: None)
  Receive Date: 20091201
  Receipt Date: 20091201
  Transmission Date: 20100525
  Serious: Yes (Life-Threatening)
  Sender: FDA-Public Use
  Company Number: None

PATIENT
  Age: 27 Year
  Sex: Female
  Weight: 65.7716 kg

DRUGS (2)
  1. DEXTROAMPHETAMINE 15MG BARR 956 [Suspect]
     Indication: ATTENTION DEFICIT/HYPERACTIVITY DISORDER
     Dosage: 15 MG 2 PO
     Route: 048
     Dates: start: 20090901, end: 20091001
  2. DEXTROAMPHETAMINE 5MG ? [Suspect]
     Indication: ATTENTION DEFICIT/HYPERACTIVITY DISORDER
     Dosage: 5MG 1 PO
     Route: 048

REACTIONS (10)
  - DELUSION [None]
  - DEPRESSION [None]
  - DEREALISATION [None]
  - HOSTILITY [None]
  - HYPERSOMNIA [None]
  - IMPAIRED WORK ABILITY [None]
  - REFUSAL OF TREATMENT BY PATIENT [None]
  - SCHOOL REFUSAL [None]
  - SOCIAL AVOIDANT BEHAVIOUR [None]
  - SUICIDAL IDEATION [None]
